FAERS Safety Report 8460197-3 (Version None)
Quarter: 2012Q2

REPORT INFORMATION
  Report Type: 
  Country: None (occurrence: None)
  Receive Date: 20120622
  Receipt Date: 20120612
  Transmission Date: 20120825
  Serious: Yes (Hospitalization)
  Sender: FDA-Public Use
  Company Number: US-ELI_LILLY_AND_COMPANY-US201205005153

PATIENT
  Sex: Female

DRUGS (3)
  1. FORTEO [Suspect]
     Dosage: 20 UG, QD
  2. FORTICAL                           /00371903/ [Concomitant]
  3. FORTEO [Suspect]
     Indication: OSTEOPOROSIS
     Dosage: 20 UG, QD
     Dates: start: 20120406

REACTIONS (17)
  - SCIATICA [None]
  - JOINT SWELLING [None]
  - NAIL GROWTH ABNORMAL [None]
  - NAIL DISORDER [None]
  - OEDEMA PERIPHERAL [None]
  - MUSCULAR WEAKNESS [None]
  - HAIR GROWTH ABNORMAL [None]
  - VASCULAR INJURY [None]
  - ACCIDENT [None]
  - MALAISE [None]
  - PAIN IN EXTREMITY [None]
  - MYALGIA [None]
  - SPINAL FRACTURE [None]
  - BURSITIS [None]
  - NASAL CONGESTION [None]
  - CONTUSION [None]
  - OSTEOARTHRITIS [None]
